FAERS Safety Report 5445733-3 (Version None)
Quarter: 2007Q3

REPORT INFORMATION
  Report Type: 
  Country: None (occurrence: None)
  Receive Date: 20070904
  Receipt Date: 20070820
  Transmission Date: 20080115
  Serious: Yes (Life-Threatening, Hospitalization, Other)
  Sender: FDA-Public Use
  Company Number: 07H-163-0313097-00

PATIENT
  Age: 61 Year
  Sex: Female
  Weight: 82.1011 kg

DRUGS (10)
  1. ATROPINE SULFATE [Suspect]
     Indication: HEART RATE DECREASED
     Dosage: 1 MG, ONCE, INTRAVENOUS
     Route: 042
     Dates: start: 20070622, end: 20070622
  2. EPINEPHRINE                               1MG/ML INJECTION, USP, 1ML A [Suspect]
     Indication: HEART RATE DECREASED
     Dosage: 1 MG, ONCE, INTRAVENOUS
     Route: 042
     Dates: start: 20070622, end: 20070622
  3. HEPARIN SODIUM I [Suspect]
     Indication: DRUG USE FOR UNKNOWN INDICATION
     Dosage: 5000 UNIT, ONCE, INTRAVENOUS BOLUS
     Route: 040
     Dates: start: 20070622
  4. ANGIOMAX [Suspect]
     Indication: PERCUTANEOUS CORONARY INTERVENTION
     Dosage: 61.5 MG, ONCE, INTRAVENOUS BOLUS; 28 ML/PER HOUR, INTRAVENOUS
     Route: 040
     Dates: start: 20070622, end: 20070622
  5. ANGIOMAX [Suspect]
     Indication: PERCUTANEOUS CORONARY INTERVENTION
     Dosage: 61.5 MG, ONCE, INTRAVENOUS BOLUS; 28 ML/PER HOUR, INTRAVENOUS
     Route: 040
     Dates: start: 20070622, end: 20070622
  6. INTEGRILIN [Suspect]
     Indication: DRUG USE FOR UNKNOWN INDICATION
     Dosage: 14.6MG, ONCE, INTRAVENOUS BOLUS; 13 ML, 13 ML/HOUR, INTRAVENOUS DRIP
     Route: 041
     Dates: start: 20070622, end: 20070622
  7. INTEGRILIN [Suspect]
     Indication: DRUG USE FOR UNKNOWN INDICATION
     Dosage: 14.6MG, ONCE, INTRAVENOUS BOLUS; 13 ML, 13 ML/HOUR, INTRAVENOUS DRIP
     Route: 041
     Dates: start: 20070622, end: 20070622
  8. ASPIRIN [Concomitant]
  9. BETA-BLOCKER                       (BETA BLOCKING AGENTS) [Concomitant]
  10. ANGIOTENSIN-CONVERTING ENZYME INHIBITOR                (ACE INHIBITOR [Concomitant]

REACTIONS (4)
  - ARTERIAL THROMBOSIS [None]
  - CARDIAC ARREST [None]
  - VENTRICULAR FIBRILLATION [None]
  - VOMITING [None]
